FAERS Safety Report 25272374 (Version 1)
Quarter: 2025Q2

REPORT INFORMATION
  Report Type: Spontaneous
  Country: HU (occurrence: HU)
  Receive Date: 20250506
  Receipt Date: 20250506
  Transmission Date: 20250717
  Serious: Yes (Other)
  Sender: ROCHE
  Company Number: HU-ROCHE-10000271987

PATIENT
  Age: 72 Year
  Sex: Male

DRUGS (3)
  1. AVASTIN [Suspect]
     Active Substance: BEVACIZUMAB
     Indication: Neoplasm
     Route: 065
     Dates: start: 2024
  2. LOMUSTINE [Concomitant]
     Active Substance: LOMUSTINE
  3. TEMODAR [Concomitant]
     Active Substance: TEMOZOLOMIDE

REACTIONS (4)
  - Fatigue [Unknown]
  - Hypersomnia [Unknown]
  - Aphasia [Unknown]
  - Dizziness [Unknown]
